FAERS Safety Report 4320722-0 (Version None)
Quarter: 2004Q1

REPORT INFORMATION
  Report Type: 
  Country: None (occurrence: None)
  Receive Date: 20040315
  Receipt Date: 20040203
  Transmission Date: 20041129
  Serious: No
  Sender: FDA-Public Use
  Company Number: 2004197162US

PATIENT
  Sex: Female

DRUGS (2)
  1. BEXTRA [Suspect]
     Indication: OSTEOARTHRITIS
     Dosage: 10 MG, QD
  2. MULTIPLE MEDICATIONS [Concomitant]

REACTIONS (2)
  - CONDITION AGGRAVATED [None]
  - GINGIVAL BLEEDING [None]
